FAERS Safety Report 6591298-2 (Version None)
Quarter: 2010Q1

REPORT INFORMATION
  Report Type: 
  Country: None (occurrence: None)
  Receive Date: 20100219
  Receipt Date: 20100208
  Transmission Date: 20100710
  Serious: Yes (Other)
  Sender: FDA-Public Use
  Company Number: US-PFIZER INC-2010016585

PATIENT
  Sex: Female
  Weight: 63.492 kg

DRUGS (4)
  1. LYRICA [Suspect]
     Indication: FIBROMYALGIA
     Dosage: 150 MG, 3X/DAY
     Route: 048
     Dates: start: 20080101, end: 20091223
  2. PREVACID [Concomitant]
     Indication: GASTROOESOPHAGEAL REFLUX DISEASE
     Dosage: 25 MG, 1X/DAY
     Dates: start: 20070101
  3. PREMARIN [Concomitant]
     Indication: HORMONE REPLACEMENT THERAPY
     Dosage: 0.9 MG, 1X/DAY
  4. HYDROCODONE [Concomitant]
     Indication: INTERVERTEBRAL DISC PROTRUSION
     Dosage: 500 MG, AS NEEDED

REACTIONS (4)
  - DYSARTHRIA [None]
  - DYSKINESIA [None]
  - NERVE INJURY [None]
  - THINKING ABNORMAL [None]
